FAERS Safety Report 19730847 (Version 5)
Quarter: 2021Q4

REPORT INFORMATION
  Report Type: Spontaneous
  Country: US (occurrence: US)
  Receive Date: 20210820
  Receipt Date: 20211020
  Transmission Date: 20220303
  Serious: Yes (Other)
  Sender: FDA-Public Use
  Company Number: US-JNJFOC-20210823017

PATIENT
  Sex: Female

DRUGS (1)
  1. NEUTROGENA BEACH DEFENSE WATER AND SUN PROTECTION SUNSCREEN BROAD SPEC [Suspect]
     Active Substance: AVOBENZONE\HOMOSALATE\OCTISALATE\OCTOCRYLENE
     Indication: Product used for unknown indication
     Dosage: USED ON LEGS HEAVILY EVERY DAY, ONE A DAY. FOR PRODUCT START DATE CONSUMER WAS NOT SURE AND STARTED
     Route: 061

REACTIONS (1)
  - Neoplasm malignant [Not Recovered/Not Resolved]
